FAERS Safety Report 15808448 (Version 1)
Quarter: 2019Q1

REPORT INFORMATION
  Report Type: Spontaneous
  Country: None (occurrence: RS)
  Receive Date: 20190110
  Receipt Date: 20190110
  Transmission Date: 20190417
  Serious: No
  Sender: FDA-Public Use
  Company Number: RS-B. BRAUN MEDICAL INC.-2061058

PATIENT
  Age: 61 Year
  Sex: Female

DRUGS (6)
  1. METRONIDAZOLE INJECTION USP (5 MG/ML) IN PAB? PLASTIC CONTAINER (NDA 0 [Suspect]
     Active Substance: METRONIDAZOLE
     Indication: ANTIBIOTIC THERAPY
     Route: 041
     Dates: start: 20161216, end: 20161220
  2. HYOSCINE [Concomitant]
     Active Substance: SCOPOLAMINE
     Route: 042
     Dates: start: 20161205
  3. METAMIZOLE SODIUM [Concomitant]
     Active Substance: METAMIZOLE SODIUM
     Route: 042
     Dates: start: 20161205
  4. CIPROFLOXACIN. [Concomitant]
     Active Substance: CIPROFLOXACIN
     Route: 042
     Dates: start: 20161205
  5. RANITIDINE. [Concomitant]
     Active Substance: RANITIDINE
     Route: 030
     Dates: start: 20161205
  6. METOCLOPRAMIDE. [Concomitant]
     Active Substance: METOCLOPRAMIDE
     Route: 042
     Dates: start: 20161205

REACTIONS (3)
  - Erythema [None]
  - Pruritus [None]
  - Urticaria [Recovered/Resolved]

NARRATIVE: CASE EVENT DATE: 20161216
